FAERS Safety Report 9739195 (Version 5)
Quarter: 2014Q1

REPORT INFORMATION
  Report Type: Spontaneous
  Country: US (occurrence: US)
  Receive Date: 20131209
  Receipt Date: 20140217
  Transmission Date: 20141002
  Serious: No
  Sender: FDA-Public Use
  Company Number: US-PFIZER INC-2013346030

PATIENT
  Age: 46 Year
  Sex: Male
  Weight: 66.67 kg

DRUGS (2)
  1. SUTENT [Suspect]
     Indication: GASTROINTESTINAL STROMAL TUMOUR
     Dosage: 200 MG, DAILY
     Dates: start: 20131129, end: 20131202
  2. SUTENT [Suspect]
     Dosage: 50 MG, CYCLIC (2 WEEKS ON 1 WEEK OFF)
     Dates: start: 20140120

REACTIONS (14)
  - Diarrhoea [Unknown]
  - Nausea [Unknown]
  - Decreased appetite [Unknown]
  - Malaise [Unknown]
  - Liver function test abnormal [Unknown]
  - Rash [Unknown]
  - Dysgeusia [Unknown]
  - Skin discolouration [Unknown]
  - Off label use [Unknown]
  - Oral mucosal erythema [Unknown]
  - Oral pain [Unknown]
  - Pallor [Unknown]
  - Asthenia [Unknown]
  - Thyroid function test abnormal [Unknown]
